FAERS Safety Report 23078445 (Version 1)
Quarter: 2023Q4

REPORT INFORMATION
  Report Type: Other
  Country: US (occurrence: US)
  Receive Date: 20231018
  Receipt Date: 20231018
  Transmission Date: 20240110
  Serious: Yes (Hospitalization)
  Sender: FDA-Public Use
  Company Number: US-ALVOGEN-2023092409

PATIENT
  Age: 22 Year

DRUGS (7)
  1. BUPROPION [Suspect]
     Active Substance: BUPROPION
     Indication: Mood altered
     Dosage: 450 MG FOR 35 DAYS?DAILY
     Dates: start: 20220301
  2. GABAPENTIN [Suspect]
     Active Substance: GABAPENTIN
     Indication: Post-traumatic headache
     Dosage: FOR 54 DAYS
     Dates: start: 20220210
  3. GABAPENTIN [Suspect]
     Active Substance: GABAPENTIN
     Indication: Post-traumatic headache
     Dosage: GABAPENTIN TAPER WAS BEGUN PER PATIENT REQUEST SECONDARY TO LACK OF EF?CACY.
     Dates: start: 2022
  4. GABAPENTIN [Suspect]
     Active Substance: GABAPENTIN
     Indication: Post-traumatic headache
     Dosage: PATIENT WAS RECOMMENDED TO INCREASE THE GABAPENTIN DOSE?FROM 200 MG BACK TO 300 MG 3 TIMES DAILY.
     Dates: start: 2022
  5. AMANTADINE [Suspect]
     Active Substance: AMANTADINE
     Indication: Post-traumatic headache
     Dosage: AMANTADINE PRESCRIPTION FILLED ON 05-APR-2022.
     Dates: start: 202204
  6. DULOXETINE [Suspect]
     Active Substance: DULOXETINE
     Indication: Product used for unknown indication
     Dosage: DAILY
     Dates: start: 2021
  7. BOTULINUM TOXIN NOS [Concomitant]
     Active Substance: BOTULINUM TOXIN NOS
     Indication: Post-traumatic headache
     Dates: start: 20220308

REACTIONS (3)
  - Serotonin syndrome [Recovered/Resolved]
  - Drug interaction [Unknown]
  - Off label use [Unknown]

NARRATIVE: CASE EVENT DATE: 20220101
